FAERS Safety Report 17683808 (Version 7)
Quarter: 2021Q2

REPORT INFORMATION
  Report Type: Report from Study
  Country: CO (occurrence: CO)
  Receive Date: 20200420
  Receipt Date: 20210503
  Transmission Date: 20210716
  Serious: Yes (Life-Threatening)
  Sender: FDA-Public Use
  Company Number: NVSC2020CO059383

PATIENT
  Sex: Female

DRUGS (5)
  1. METOPROLOL. [Suspect]
     Active Substance: METOPROLOL
     Indication: ARRHYTHMIA
     Dosage: UNK UNK, QD
     Route: 048
  2. REVOLADE [Suspect]
     Active Substance: ELTROMBOPAG OLAMINE
     Dosage: 100 MG, QD (TWO TABLETS OF 50MG QD)
     Route: 048
  3. METFORMIN [Suspect]
     Active Substance: METFORMIN HYDROCHLORIDE
     Indication: PRODUCT USED FOR UNKNOWN INDICATION
     Dosage: UNK UNK, QD
     Route: 048
  4. REVOLADE [Suspect]
     Active Substance: ELTROMBOPAG OLAMINE
     Indication: IMMUNE THROMBOCYTOPENIA
     Dosage: 50 MG, QD
     Route: 048
     Dates: start: 202002
  5. OMEPRAZOLE. [Concomitant]
     Active Substance: OMEPRAZOLE
     Indication: PRODUCT USED FOR UNKNOWN INDICATION
     Dosage: UNK
     Route: 065

REACTIONS (9)
  - Pain in extremity [Unknown]
  - Contusion [Unknown]
  - Malaise [Unknown]
  - Headache [Unknown]
  - Platelet count decreased [Recovering/Resolving]
  - Prescribed overdose [Unknown]
  - Pigmentation disorder [Unknown]
  - Depressed mood [Unknown]
  - Treatment failure [Unknown]
